FAERS Safety Report 5052966-7 (Version None)
Quarter: 2006Q3

REPORT INFORMATION
  Report Type: 
  Country: None (occurrence: None)
  Receive Date: 20060712
  Receipt Date: 20060629
  Transmission Date: 20061208
  Serious: Yes (Hospitalization)
  Sender: FDA-Public Use
  Company Number: 2006018740

PATIENT
  Age: 40 Year
  Sex: Female
  Weight: 50.6 kg

DRUGS (7)
  1. SUTENT [Suspect]
     Indication: GASTROINTESTINAL STROMAL TUMOUR
     Dosage: 50 MG (25 MG, TWICE A DAY FOR 4 WKS WITH 2 WK WASHOUT), ORAL
     Route: 048
     Dates: start: 20050517
  2. ATIVAN [Concomitant]
  3. BENADRYL [Concomitant]
  4. ACETAMINOPHEN [Concomitant]
  5. OMEPRAZOLE [Concomitant]
  6. MS CONTIN [Concomitant]
  7. OXYCODONE (OXYCODONE) [Concomitant]

REACTIONS (4)
  - ABDOMINAL PAIN [None]
  - CHEST PAIN [None]
  - NAUSEA [None]
  - VOMITING [None]
